FAERS Safety Report 19364179 (Version 2)
Quarter: 2021Q2

REPORT INFORMATION
  Report Type: Report from Study
  Country: CA (occurrence: CA)
  Receive Date: 20210602
  Receipt Date: 20210615
  Transmission Date: 20210717
  Serious: Yes (Hospitalization, Other)
  Sender: FDA-Public Use
  Company Number: CA-SAMSUNG BIOEPIS-SB-2021-13486

PATIENT
  Age: 33 Year
  Sex: Female

DRUGS (2)
  1. RENFLEXIS [Suspect]
     Active Substance: INFLIXIMAB-ABDA
     Dosage: 100 MG VIAL
     Route: 042
     Dates: start: 20210414
  2. RENFLEXIS [Suspect]
     Active Substance: INFLIXIMAB-ABDA
     Indication: CROHN^S DISEASE
     Route: 042

REACTIONS (2)
  - Schizoaffective disorder [Unknown]
  - Severe acute respiratory syndrome [Unknown]

NARRATIVE: CASE EVENT DATE: 20210527
